FAERS Safety Report 14572745 (Version 1)
Quarter: 2018Q1

REPORT INFORMATION
  Report Type: Spontaneous
  Country: US (occurrence: US)
  Receive Date: 20180221
  Receipt Date: 20180221
  Transmission Date: 20180509
  Serious: Yes (Hospitalization)
  Sender: FDA-Public Use
  Company Number: None

PATIENT
  Sex: Male

DRUGS (5)
  1. ACETAMIN [Concomitant]
     Active Substance: ACETAMINOPHEN
  2. FLUTICASONE. [Concomitant]
     Active Substance: FLUTICASONE
  3. GUAIFENESIN. [Concomitant]
     Active Substance: GUAIFENESIN
  4. TOBRAMYCIN. [Suspect]
     Active Substance: TOBRAMYCIN
     Indication: CYSTIC FIBROSIS
     Dosage: ?          OTHER ROUTE:INHALATION?
     Route: 055
     Dates: start: 20171228
  5. PANTOPRAZOLE [Concomitant]
     Active Substance: PANTOPRAZOLE

REACTIONS (1)
  - Pneumonia [None]
